FAERS Safety Report 10639379 (Version 2)
Quarter: 2014Q4

REPORT INFORMATION
  Report Type: Report from Study
  Country: MX (occurrence: MX)
  Receive Date: 20141208
  Receipt Date: 20141222
  Transmission Date: 20150529
  Serious: Yes (Other)
  Sender: FDA-Public Use
  Company Number: PHHY2014MX160499

PATIENT
  Sex: Male

DRUGS (4)
  1. EXFORGE [Suspect]
     Active Substance: AMLODIPINE BESYLATE\VALSARTAN
     Dosage: 1 DF (160/5MG), QD
     Route: 048
     Dates: start: 20140808
  2. AMLODIPINE [Suspect]
     Active Substance: AMLODIPINE BESYLATE
     Indication: PRODUCT USED FOR UNKNOWN INDICATION
     Route: 065
  3. BICALUTAMIDE. [Concomitant]
     Active Substance: BICALUTAMIDE
     Indication: PROSTATIC DISORDER
     Dosage: 1 DF, (EVERY 3 MONTHS)
     Route: 023
  4. EXFORGE [Suspect]
     Active Substance: AMLODIPINE BESYLATE\VALSARTAN
     Indication: HYPERTENSION
     Dosage: 1 DF (320/5MG), QD
     Route: 048
     Dates: end: 2011

REACTIONS (6)
  - Prostate cancer [Recovering/Resolving]
  - Drug intolerance [Unknown]
  - Feeling abnormal [Recovered/Resolved]
  - Dyspnoea [Recovered/Resolved]
  - Blood pressure abnormal [Unknown]
  - Prostatic specific antigen increased [Recovering/Resolving]
